FAERS Safety Report 17835659 (Version 3)
Quarter: 2020Q3

REPORT INFORMATION
  Report Type: Report from Study
  Country: IT (occurrence: IT)
  Receive Date: 20200528
  Receipt Date: 20200808
  Transmission Date: 20201103
  Serious: Yes (Hospitalization)
  Sender: FDA-Public Use
  Company Number: IT-SA-2020SA135514

PATIENT

DRUGS (15)
  1. FLUOROURACIL. [Suspect]
     Active Substance: FLUOROURACIL
     Dosage: 4800 MG, QOW
     Route: 041
     Dates: start: 20200512, end: 20200512
  2. FLUOROURACIL. [Suspect]
     Active Substance: FLUOROURACIL
     Dosage: 4800 MG, QOW
     Route: 041
     Dates: start: 20200330, end: 20200330
  3. EN [Concomitant]
     Active Substance: DELORAZEPAM
     Indication: ANXIETY
     Dosage: 10?15 DROPS, QD
     Route: 048
     Dates: start: 20200522
  4. IRINOTECAN [Suspect]
     Active Substance: IRINOTECAN
     Indication: COLORECTAL CANCER METASTATIC
     Dosage: 360 MG, QOW
     Route: 042
     Dates: start: 20200512, end: 20200512
  5. FOLINIC ACID [Suspect]
     Active Substance: LEUCOVORIN
     Indication: COLORECTAL CANCER METASTATIC
     Dosage: 400 MG, QOW
     Route: 042
     Dates: start: 20200512, end: 20200512
  6. FOLINIC ACID [Suspect]
     Active Substance: LEUCOVORIN
     Dosage: 400 MG, QOW
     Route: 042
     Dates: start: 20200330, end: 20200330
  7. AFLIBERCEPT [Suspect]
     Active Substance: AFLIBERCEPT
     Dosage: 4 MG/KG, QOW (EVERY 14 DAYS)
     Route: 042
     Dates: start: 20200330, end: 20200330
  8. FLUOROURACIL. [Suspect]
     Active Substance: FLUOROURACIL
     Indication: COLORECTAL CANCER METASTATIC
     Dosage: 800 MG, QOW
     Route: 040
     Dates: start: 20200512, end: 20200512
  9. CERCHIO [Concomitant]
     Active Substance: CETIRIZINE HYDROCHLORIDE
     Indication: PRURITUS
     Dosage: 10 MG, QD
     Route: 048
     Dates: start: 20200424
  10. AFLIBERCEPT [Suspect]
     Active Substance: AFLIBERCEPT
     Indication: COLORECTAL CANCER METASTATIC
     Dosage: 4 MG/KG, QOW (EVERY 14 DAYS)
     Route: 042
     Dates: start: 20200512, end: 20200512
  11. PANTOPRAZOLE [Concomitant]
     Active Substance: PANTOPRAZOLE
     Indication: PROPHYLAXIS
     Dosage: 40 MG, QD
     Route: 048
     Dates: start: 20190318
  12. LYRICA [Concomitant]
     Active Substance: PREGABALIN
     Indication: PAIN
     Dosage: 25 MG, BID
     Route: 048
     Dates: start: 20191029
  13. FLUOROURACIL. [Suspect]
     Active Substance: FLUOROURACIL
     Dosage: 800 MG, QOW
     Route: 040
     Dates: start: 20200330, end: 20200330
  14. IRINOTECAN [Suspect]
     Active Substance: IRINOTECAN
     Dosage: 360 MG, QOW
     Route: 042
     Dates: start: 20200330, end: 20200330
  15. LOPERAMIDE [Concomitant]
     Active Substance: LOPERAMIDE
     Indication: DIARRHOEA
     Dosage: UNK
     Route: 065

REACTIONS (2)
  - Mucosal toxicity [Recovered/Resolved]
  - Skin toxicity [Recovered/Resolved]

NARRATIVE: CASE EVENT DATE: 20200520
